FAERS Safety Report 7655945-6 (Version None)
Quarter: 2011Q3

REPORT INFORMATION
  Report Type: 
  Country: None (occurrence: None)
  Receive Date: 20110801
  Receipt Date: 20110715
  Transmission Date: 20111222
  Serious: Yes (Other)
  Sender: FDA-Public Use
  Company Number: AUR-APL-2011-04290

PATIENT
  Age: 61 Year
  Sex: Female

DRUGS (11)
  1. DILTIAZEM [Suspect]
     Indication: PRODUCT USED FOR UNKNOWN INDICATION
     Dosage: 200 MG (200 MG, 1 IN 1 D)
     Dates: start: 20101006
  2. ASPIRIN [Concomitant]
  3. LOSARTAN POTASSIUM [Concomitant]
  4. BENDROFLUMETHIAZIDE (BENDROFLUMETHIAZIDE) [Concomitant]
  5. DANDELION (TARAXACUM OFFICINALE) [Concomitant]
  6. BISOPROLOL FUMARATE [Suspect]
     Indication: PRODUCT USED FOR UNKNOWN INDICATION
     Dates: start: 20101001, end: 20101006
  7. RAMIPRIL [Suspect]
     Indication: BLOOD PRESSURE
     Dosage: (2.5 MG), (0.75 MG)
     Dates: start: 20101206, end: 20101216
  8. RAMIPRIL [Suspect]
     Indication: BLOOD PRESSURE
     Dosage: (2.5 MG), (0.75 MG)
     Dates: start: 20101118
  9. HERBAL MEDICATION (HERBAL PREPARATION) [Concomitant]
  10. INDAPAMIDE [Concomitant]
  11. SIMVASTATIN [Concomitant]

REACTIONS (3)
  - VISION BLURRED [None]
  - BLOOD PRESSURE INCREASED [None]
  - VISUAL IMPAIRMENT [None]
